FAERS Safety Report 4938933-X (Version None)
Quarter: 2006Q1

REPORT INFORMATION
  Report Type: 
  Country: None (occurrence: None)
  Receive Date: 20060309
  Receipt Date: 20040513
  Transmission Date: 20060701
  Serious: Yes (Death, Life-Threatening, Hospitalization, Other)
  Sender: FDA-Public Use
  Company Number: JP-MERCK-0405USA01706

PATIENT
  Age: 73 Year
  Sex: Female

DRUGS (13)
  1. PEPCID [Suspect]
     Indication: GASTRITIS
     Route: 048
     Dates: end: 20000101
  2. ALOSENN [Concomitant]
     Route: 048
  3. CELTECT [Concomitant]
     Route: 048
     Dates: end: 20000523
  4. LANIRAPID [Concomitant]
     Route: 048
     Dates: end: 20000509
  5. LASIX [Concomitant]
     Route: 048
  6. MARZULENE-S [Concomitant]
     Route: 048
     Dates: end: 20000515
  7. PANALDINE [Concomitant]
     Route: 001
     Dates: end: 20000520
  8. POLARAMINE [Concomitant]
     Route: 048
     Dates: end: 20000524
  9. SEDIEL [Concomitant]
     Route: 048
     Dates: end: 20000520
  10. METHYLPREDNISOLONE [Concomitant]
     Route: 065
  11. SULFAMETHOXAZOLE [Concomitant]
     Route: 065
  12. WARFARIN POTASSIUM [Concomitant]
     Route: 065
  13. NORVASC [Suspect]
     Indication: HYPERTENSION
     Route: 048
     Dates: end: 20000513

REACTIONS (10)
  - ACTINOMYCOTIC PULMONARY INFECTION [None]
  - DEHYDRATION [None]
  - DRUG ERUPTION [None]
  - NEPHRITIS ALLERGIC [None]
  - NEPHRITIS INTERSTITIAL [None]
  - NOCARDIOSIS [None]
  - PARAPSORIASIS [None]
  - PITYRIASIS LICHENOIDES ET VARIOLIFORMIS ACUTA [None]
  - RASH [None]
  - RENAL FAILURE [None]
